FAERS Safety Report 11431462 (Version 15)
Quarter: 2016Q4

REPORT INFORMATION
  Report Type: Report from Study
  Country: US (occurrence: US)
  Receive Date: 20150828
  Receipt Date: 20161116
  Transmission Date: 20170206
  Serious: Yes (Hospitalization, Other)
  Sender: FDA-Public Use
  Company Number: US-EISAI MEDICAL RESEARCH-EC-2015-009929

PATIENT
  Age: 57 Year
  Sex: Male
  Weight: 81 kg

DRUGS (25)
  1. LENVATINIB [Suspect]
     Active Substance: LENVATINIB
     Indication: THYROID CANCER
     Route: 048
     Dates: start: 20120801, end: 20150817
  2. FLUTICASONE FUROATE/VILANTEROL INHALER [Concomitant]
  3. CALCIUM CARBONATE. [Concomitant]
     Active Substance: CALCIUM CARBONATE
  4. BYSTOLIC [Concomitant]
     Active Substance: NEBIVOLOL HYDROCHLORIDE
  5. SYNTHROID [Concomitant]
     Active Substance: LEVOTHYROXINE SODIUM
  6. LOMOTIL [Concomitant]
     Active Substance: ATROPINE SULFATE\DIPHENOXYLATE HYDROCHLORIDE
  7. ZENPEP [Concomitant]
     Active Substance: PANCRELIPASE AMYLASE\PANCRELIPASE LIPASE\PANCRELIPASE PROTEASE
  8. GLIPIZIDE. [Concomitant]
     Active Substance: GLIPIZIDE
  9. LENVATINIB [Suspect]
     Active Substance: LENVATINIB
     Route: 048
     Dates: start: 20160604, end: 20160809
  10. ALLOPURINOL. [Concomitant]
     Active Substance: ALLOPURINOL
  11. NORVASC [Concomitant]
     Active Substance: AMLODIPINE BESYLATE
  12. COLCRYS [Concomitant]
     Active Substance: COLCHICINE
  13. CREON [Concomitant]
     Active Substance: PANCRELIPASE AMYLASE\PANCRELIPASE LIPASE\PANCRELIPASE PROTEASE
  14. HYDROCHLOROTHIAZIDE. [Concomitant]
     Active Substance: HYDROCHLOROTHIAZIDE
  15. LENVATINIB [Suspect]
     Active Substance: LENVATINIB
     Route: 048
     Dates: start: 20150908, end: 20160222
  16. SIMVASTATIN. [Concomitant]
     Active Substance: SIMVASTATIN
  17. ENALAPRIL [Concomitant]
     Active Substance: ENALAPRIL
  18. VITAMIN D [Concomitant]
     Active Substance: CHOLECALCIFEROL
  19. METFORMIN HCL [Concomitant]
     Active Substance: METFORMIN HYDROCHLORIDE
  20. TELMISARTAN. [Concomitant]
     Active Substance: TELMISARTAN
  21. SPIRONOLACTONE. [Concomitant]
     Active Substance: SPIRONOLACTONE
  22. HYDRALAZINE [Concomitant]
     Active Substance: HYDRALAZINE HYDROCHLORIDE
  23. ZOMETA [Concomitant]
     Active Substance: ZOLEDRONIC ACID
  24. CLONIDINE. [Concomitant]
     Active Substance: CLONIDINE
  25. LENVATINIB [Suspect]
     Active Substance: LENVATINIB
     Route: 048
     Dates: start: 20160317, end: 20160517

REACTIONS (6)
  - Pulmonary mass [Recovered/Resolved]
  - Hypotension [Recovered/Resolved]
  - Confusional state [Recovered/Resolved]
  - Ventricular tachycardia [Recovered/Resolved with Sequelae]
  - Hypertension [Recovered/Resolved]
  - Spindle cell sarcoma [Recovered/Resolved]

NARRATIVE: CASE EVENT DATE: 20150821
